FAERS Safety Report 9917935 (Version 2)
Quarter: 2014Q1

REPORT INFORMATION
  Report Type: Spontaneous
  Country: IE (occurrence: IE)
  Receive Date: 20140222
  Receipt Date: 20140222
  Transmission Date: 20141002
  Serious: Yes (Other)
  Sender: FDA-Public Use
  Company Number: IE-JNJFOC-20140105091

PATIENT
  Sex: Female

DRUGS (2)
  1. DAKTARIN [Suspect]
     Route: 048
  2. DAKTARIN [Suspect]
     Indication: PRODUCT USED FOR UNKNOWN INDICATION
     Route: 048

REACTIONS (3)
  - Asphyxia [Unknown]
  - Eye haemorrhage [Unknown]
  - Contusion [Unknown]
